FAERS Safety Report 8018715-5 (Version None)
Quarter: 2012Q1

REPORT INFORMATION
  Report Type: 
  Country: None (occurrence: None)
  Receive Date: 20120103
  Receipt Date: 20120103
  Transmission Date: 20120608
  Serious: No
  Sender: FDA-Public Use
  Company Number: None

PATIENT
  Age: 52 Year
  Sex: Male
  Weight: 84.821 kg

DRUGS (6)
  1. SERTRALINE HYDROCHLORIDE [Suspect]
     Indication: DEPRESSION
     Dosage: 50MG
     Route: 048
     Dates: start: 20111129, end: 20111212
  2. ASPIRIN [Concomitant]
     Route: 048
  3. GLYBURIDE [Concomitant]
     Route: 048
  4. METFORMIN HCL [Concomitant]
     Route: 048
  5. HYDROCHLOROTHIAZIDE [Concomitant]
     Route: 048
  6. LISINOPRIL [Concomitant]
     Route: 048

REACTIONS (7)
  - DISCOMFORT [None]
  - DIZZINESS [None]
  - VOMITING [None]
  - VERTIGO [None]
  - MALAISE [None]
  - DEAFNESS UNILATERAL [None]
  - TINNITUS [None]
